FAERS Safety Report 4488948-3 (Version None)
Quarter: 2004Q4

REPORT INFORMATION
  Report Type: 
  Country: None (occurrence: None)
  Receive Date: 20041029
  Receipt Date: 20041019
  Transmission Date: 20050328
  Serious: Yes (Other)
  Sender: FDA-Public Use
  Company Number: JP-BRISTOL-MYERS SQUIBB COMPANY-12743860

PATIENT
  Age: 65 Year
  Sex: Male

DRUGS (6)
  1. MITOMYCIN-C [Suspect]
     Indication: INTRAOCULAR PRESSURE TEST
     Dates: start: 20000201, end: 20010801
  2. TIMOLOL MALEATE [Suspect]
     Indication: INTRAOCULAR PRESSURE TEST
     Dates: start: 19950101, end: 20030312
  3. DORZOLAMIDE HCL [Suspect]
     Indication: INTRAOCULAR PRESSURE TEST
     Dates: end: 20030312
  4. ACETAZOLAMIDE [Suspect]
     Indication: INTRAOCULAR PRESSURE TEST
     Route: 048
     Dates: start: 20020101, end: 20030312
  5. LATANOPROST [Concomitant]
     Dates: end: 20030312
  6. BUNAZOSIN [Concomitant]
     Dosage: DISCONTINUED AND THEN RESTARTED
     Dates: end: 20030312

REACTIONS (3)
  - CHOROIDAL DETACHMENT [None]
  - GLAUCOMA [None]
  - POST PROCEDURAL COMPLICATION [None]
